FAERS Safety Report 8187355 (Version 2)
Quarter: 2012Q4

REPORT INFORMATION
  Report Type: Report from Study
  Country: JP (occurrence: JP)
  Receive Date: 20111018
  Receipt Date: 20120907
  Transmission Date: 20130627
  Serious: Yes (Life-Threatening, Hospitalization)
  Sender: FDA-Public Use
  Company Number: PHHY2011JP67217

PATIENT
  Age: 72 Year
  Sex: Female
  Weight: 40 kg

DRUGS (4)
  1. AMN107 [Suspect]
     Indication: CHRONIC MYELOID LEUKAEMIA
     Dosage: 150 mg daily
     Dates: start: 20110506, end: 20110617
  2. PARIET [Suspect]
     Dosage: 10 mg, daily
     Dates: start: 20110706, end: 20110721
  3. BAKTAR [Suspect]
     Dates: start: 20110706, end: 20110721
  4. MYCOSYST [Suspect]
     Dosage: 200 mg, daily
     Dates: start: 20110706, end: 20110721

REACTIONS (2)
  - Pancytopenia [Recovering/Resolving]
  - Sepsis [Recovered/Resolved]
